FAERS Safety Report 6140705-8 (Version None)
Quarter: 2009Q2

REPORT INFORMATION
  Report Type: 
  Country: None (occurrence: None)
  Receive Date: 20090402
  Receipt Date: 20090327
  Transmission Date: 20091009
  Serious: Yes (Hospitalization)
  Sender: FDA-Public Use
  Company Number: US-BIOGENIDEC-2009BI009965

PATIENT
  Age: 32 Year
  Sex: Female

DRUGS (2)
  1. TYSABRI [Suspect]
     Indication: MULTIPLE SCLEROSIS
     Route: 042
     Dates: start: 20071213
  2. AVONEX [Concomitant]
     Indication: MULTIPLE SCLEROSIS
     Route: 030
     Dates: start: 20070323

REACTIONS (7)
  - AMNESIA [None]
  - BRADYPHRENIA [None]
  - FATIGUE [None]
  - HYPERAESTHESIA [None]
  - NEURALGIA [None]
  - PARALYSIS [None]
  - SPEECH DISORDER [None]
